FAERS Safety Report 16864214 (Version 1)
Quarter: 2019Q3

REPORT INFORMATION
  Report Type: Spontaneous
  Country: NL (occurrence: NL)
  Receive Date: 20190927
  Receipt Date: 20190927
  Transmission Date: 20191005
  Serious: Yes (Other)
  Sender: FDA-Public Use
  Company Number: NL-009507513-1909NLD014564

PATIENT
  Age: 65 Year
  Sex: Male

DRUGS (1)
  1. PEMBROLIZUMAB. [Suspect]
     Active Substance: PEMBROLIZUMAB
     Indication: NON-SMALL CELL LUNG CANCER

REACTIONS (2)
  - Diabetic ketoacidosis [Recovered/Resolved]
  - Immune-mediated adverse reaction [Recovered/Resolved]
